FAERS Safety Report 17016521 (Version 1)
Quarter: 2019Q4

REPORT INFORMATION
  Report Type: Spontaneous
  Country: FR (occurrence: FR)
  Receive Date: 20191111
  Receipt Date: 20191111
  Transmission Date: 20200122
  Serious: Yes (Other)
  Sender: FDA-Public Use
  Company Number: FR-PFIZER INC-2019481577

PATIENT
  Age: 38 Year
  Sex: Female

DRUGS (1)
  1. PAMIDRONATE DISODIUM. [Suspect]
     Active Substance: PAMIDRONATE DISODIUM
     Indication: ANKYLOSING SPONDYLITIS
     Dosage: 45 MG, 1X/DAY
     Route: 041
     Dates: start: 20190806, end: 20190808

REACTIONS (3)
  - Thrombophlebitis superficial [Recovered/Resolved]
  - Product use in unapproved indication [Unknown]
  - Off label use [Unknown]

NARRATIVE: CASE EVENT DATE: 20190806
